FAERS Safety Report 21679661 (Version 1)
Quarter: 2022Q4

REPORT INFORMATION
  Report Type: Spontaneous
  Country: US (occurrence: US)
  Receive Date: 20221205
  Receipt Date: 20221205
  Transmission Date: 20230113
  Serious: No
  Sender: FDA-Public Use
  Company Number: US-BRISTOL-MYERS SQUIBB COMPANY-2022-145847

PATIENT
  Age: 77 Year
  Sex: Male
  Weight: 86 kg

DRUGS (4)
  1. OPDIVO [Suspect]
     Active Substance: NIVOLUMAB
     Indication: Bile duct cancer
     Route: 042
  2. OPDIVO [Suspect]
     Active Substance: NIVOLUMAB
     Indication: Metastases to lung
  3. YERVOY [Suspect]
     Active Substance: IPILIMUMAB
     Indication: Bile duct cancer
     Route: 042
  4. YERVOY [Suspect]
     Active Substance: IPILIMUMAB
     Indication: Metastases to lung

REACTIONS (2)
  - Gastric disorder [Unknown]
  - Lethargy [Unknown]
